FAERS Safety Report 9059218 (Version 3)
Quarter: 2013Q1

REPORT INFORMATION
  Report Type: Report from Study
  Country: US (occurrence: US)
  Receive Date: 20130131
  Receipt Date: 20130313
  Transmission Date: 20140127
  Serious: Yes (Death, Other)
  Sender: FDA-Public Use
  Company Number: US-ASTELLAS-2012US010049

PATIENT
  Age: 55 None
  Sex: Male

DRUGS (3)
  1. ERLOTINIB TABLET [Suspect]
     Indication: LUNG CARCINOMA CELL TYPE UNSPECIFIED STAGE 0
     Dosage: 150 MG, UID/QD
     Route: 048
     Dates: start: 20120920
  2. ATIVAN [Concomitant]
     Indication: ANXIETY
     Dosage: 1 MG, QID
     Route: 065
  3. NEURONTIN [Concomitant]
     Indication: PRODUCT USED FOR UNKNOWN INDICATION
     Dosage: 300 MG, BID
     Route: 065

REACTIONS (24)
  - Choking [Unknown]
  - Haemoptysis [Unknown]
  - Deep vein thrombosis [Unknown]
  - Malignant neoplasm progression [Unknown]
  - Oropharyngeal pain [Unknown]
  - Hypoaesthesia [Unknown]
  - Dysuria [Unknown]
  - Nail dystrophy [Recovering/Resolving]
  - Skin hypertrophy [Unknown]
  - Back pain [Unknown]
  - Mucosal dryness [Unknown]
  - Poor dental condition [Unknown]
  - Constipation [Unknown]
  - Paraesthesia [Unknown]
  - Pruritus [Unknown]
  - Vomiting [Unknown]
  - Weight decreased [Unknown]
  - Asthenia [Unknown]
  - Oedema peripheral [Unknown]
  - Nausea [Unknown]
  - Dry skin [Unknown]
  - Depression [Unknown]
  - Anxiety [Unknown]
  - Lung neoplasm malignant [Fatal]
